FAERS Safety Report 16425895 (Version 1)
Quarter: 2019Q2

REPORT INFORMATION
  Report Type: Spontaneous
  Country: US (occurrence: US)
  Receive Date: 20190613
  Receipt Date: 20190613
  Transmission Date: 20190711
  Serious: No
  Sender: FDA-Public Use
  Company Number: US-LEO PHARMA-319188

PATIENT
  Sex: Male

DRUGS (1)
  1. SKINOREN CUTANEOUS FOAM [Suspect]
     Active Substance: AZELAIC ACID
     Indication: ROSACEA
     Dosage: STARTED 3 TO 4 DAYS AGO (AT THE TIME OF REPORT)
     Route: 061

REACTIONS (1)
  - Dry skin [Not Recovered/Not Resolved]
